FAERS Safety Report 17401377 (Version 1)
Quarter: 2020Q1

REPORT INFORMATION
  Report Type: Spontaneous
  Country: US (occurrence: US)
  Receive Date: 20200127
  Receipt Date: 20200127
  Transmission Date: 20200409
  Serious: No
  Sender: FDA-Public Use
  Company Number: None

PATIENT
  Age: 8 Year
  Sex: Male

DRUGS (12)
  1. POLYETH GLYC POW [Concomitant]
  2. AMOXICILLIN. [Concomitant]
     Active Substance: AMOXICILLIN
  3. MELOXICAM. [Concomitant]
     Active Substance: MELOXICAM
  4. VITAMIN D3 [Concomitant]
     Active Substance: CHOLECALCIFEROL
  5. CERTIRIZINE SOL [Concomitant]
  6. MONTELUKAST [Concomitant]
     Active Substance: MONTELUKAST SODIUM
  7. OMEPRAZOLE. [Concomitant]
     Active Substance: OMEPRAZOLE
  8. HUMIRA [Suspect]
     Active Substance: ADALIMUMAB
     Indication: SKIN DISORDER
     Dosage: ?          OTHER FREQUENCY:EVERY2WEEKS ;?
     Route: 058
     Dates: start: 20190306
  9. FLUTICASONE SPR [Concomitant]
  10. ALBUTEROL AER HFA [Concomitant]
  11. DULERA [Concomitant]
     Active Substance: FORMOTEROL FUMARATE DIHYDRATE\MOMETASONE FUROATE
  12. ESCITALOPRAM SOL [Concomitant]

REACTIONS (1)
  - Condition aggravated [None]
